FAERS Safety Report 6550604-5 (Version None)
Quarter: 2010Q1

REPORT INFORMATION
  Report Type: 
  Country: None (occurrence: None)
  Receive Date: 20100125
  Receipt Date: 20090217
  Transmission Date: 20100710
  Serious: No
  Sender: FDA-Public Use
  Company Number: US-TYCO HEALTHCARE/MALLINCKRODT-T200900440

PATIENT
  Sex: Female
  Weight: 58.05 kg

DRUGS (3)
  1. OPTIRAY 350 [Suspect]
     Indication: COMPUTERISED TOMOGRAM
     Dosage: 30 ML, SINGLE
     Route: 042
     Dates: start: 20090212, end: 20090212
  2. READI-CAT [Concomitant]
     Indication: COMPUTERISED TOMOGRAM
     Dosage: 450 ML, SINGLE
     Route: 048
     Dates: start: 20090201, end: 20090201
  3. METOPROLOL [Concomitant]
     Indication: HYPERTENSION
     Dosage: 25 MG,1 TAB QHS
     Route: 048
     Dates: start: 20070101

REACTIONS (4)
  - MONOPLEGIA [None]
  - MUSCLE SPASMS [None]
  - PAIN [None]
  - SKIN DISCOLOURATION [None]
